FAERS Safety Report 13880546 (Version 1)
Quarter: 2017Q3

REPORT INFORMATION
  Report Type: Spontaneous
  Country: US (occurrence: US)
  Receive Date: 20170818
  Receipt Date: 20170818
  Transmission Date: 20171127
  Serious: Yes (Death)
  Sender: FDA-Public Use
  Company Number: US-PFIZER INC-2017358304

PATIENT
  Age: 73 Year
  Sex: Female
  Weight: 65 kg

DRUGS (14)
  1. AMANTADINE. [Concomitant]
     Active Substance: AMANTADINE HYDROCHLORIDE
     Dosage: 100 MG, 2X/DAY
  2. CLOPIDOGREL [Concomitant]
     Active Substance: CLOPIDOGREL BISULFATE
     Dosage: 75 MG, 1X/DAY
  3. REMERON [Concomitant]
     Active Substance: MIRTAZAPINE
     Dosage: 15 MG, 1X/DAY AT BEDTIME
  4. MELATONIN [Concomitant]
     Active Substance: MELATONIN
     Dosage: 3 MG, 1X/DAY AT BEDTIME
  5. RAPAMUNE [Suspect]
     Active Substance: SIROLIMUS
     Indication: LIVER TRANSPLANT
     Dosage: UNK
  6. METOPROLOL TARTRATE. [Concomitant]
     Active Substance: METOPROLOL TARTRATE
     Dosage: 50 MG, 2X/DAY
  7. CYCLOBENZAPRINE. [Concomitant]
     Active Substance: CYCLOBENZAPRINE
     Dosage: 5 MG, 2X/DAY
  8. PAROXETINE. [Concomitant]
     Active Substance: PAROXETINE
     Dosage: 20 MG, 1X/DAY AT BEDTIME
  9. ZANTAC [Concomitant]
     Active Substance: RANITIDINE HYDROCHLORIDE
     Dosage: 150 MG, 2X/DAY
  10. LOPERAMIDE [Concomitant]
     Active Substance: LOPERAMIDE
     Dosage: 2 MG, 1X/DAY
  11. ROPINIROLE. [Concomitant]
     Active Substance: ROPINIROLE
     Dosage: 0.5 MG, 3X/DAY
  12. ATORVASTATIN [Concomitant]
     Active Substance: ATORVASTATIN
     Dosage: 40 MG, 1X/DAY AT BEDTIME
  13. FUROSEMIDE. [Concomitant]
     Active Substance: FUROSEMIDE
     Dosage: UNK, 1X/DAY
  14. VITAMIN D3 [Concomitant]
     Active Substance: CHOLECALCIFEROL
     Dosage: 2000 IU, MONDAY, WEDNESDAY, FRIDAY ONCE A DAY

REACTIONS (3)
  - Ischaemic cardiomyopathy [Fatal]
  - Respiratory failure [Fatal]
  - Product use in unapproved indication [Unknown]
